FAERS Safety Report 14904261 (Version 3)
Quarter: 2018Q4

REPORT INFORMATION
  Report Type: Report from Study
  Country: FR (occurrence: FR)
  Receive Date: 20180516
  Receipt Date: 20181106
  Transmission Date: 20190204
  Serious: Yes (Hospitalization, Disabling)
  Sender: FDA-Public Use
  Company Number: FR-AMGEN-FRACT2018065619

PATIENT
  Age: 60 Year
  Sex: Female
  Weight: 88 kg

DRUGS (16)
  1. THERALENE [Concomitant]
     Active Substance: TRIMEPRAZINE
     Dosage: 45 GTT, UNK
     Route: 048
     Dates: start: 20161220, end: 20180429
  2. ATARAX [Concomitant]
     Active Substance: HYDROXYZINE HYDROCHLORIDE
     Dosage: 25 MG, UNK
     Route: 048
     Dates: start: 20140425
  3. CLOPIDOGREL [Concomitant]
     Active Substance: CLOPIDOGREL BISULFATE
     Dosage: UNK
  4. AUGMENTIN [Concomitant]
     Active Substance: AMOXICILLIN\CLAVULANATE POTASSIUM
     Dosage: 1 UNK, UNK
     Route: 048
     Dates: start: 201804, end: 201804
  5. PREFILLED AUTOINJECTOR/PEN [Suspect]
     Active Substance: DEVICE
     Indication: DYSLIPIDAEMIA
     Dosage: UNK
     Route: 058
     Dates: start: 20170719
  6. EZETROL [Concomitant]
     Active Substance: EZETIMIBE
     Dosage: 10 MG, UNK
     Route: 048
     Dates: start: 201308
  7. PROCORALAN [Concomitant]
     Active Substance: IVABRADINE
     Dosage: 5 MG, UNK
     Route: 048
     Dates: start: 20140425
  8. PARACETAMOL [Concomitant]
     Active Substance: ACETAMINOPHEN
     Dosage: 500 MG, UNK
     Route: 048
     Dates: start: 20171223, end: 20180115
  9. ESIDREX [Concomitant]
     Active Substance: HYDROCHLOROTHIAZIDE
     Dosage: 12.5-25 MG, UNK
     Route: 048
     Dates: start: 20140425
  10. EUPRESSYL [Concomitant]
     Active Substance: URAPIDIL
     Dosage: 30-60 MG, UNK
     Route: 048
     Dates: start: 20150831
  11. ALDACTONE [Concomitant]
     Active Substance: SPIRONOLACTONE
     Dosage: 12.5 MG, UNK
     Route: 048
     Dates: start: 20170919
  12. EVOLOCUMAB [Suspect]
     Active Substance: EVOLOCUMAB
     Indication: DYSLIPIDAEMIA
     Dosage: 3 ML, UNK
     Route: 058
     Dates: start: 20170719
  13. CRESTOR [Concomitant]
     Active Substance: ROSUVASTATIN CALCIUM
     Indication: DYSLIPIDAEMIA
     Dosage: 20 MG, UNK
     Dates: start: 201302, end: 20180426
  14. INSULIN [Concomitant]
     Active Substance: INSULIN NOS
     Dosage: UNK
  15. LASILIX [Concomitant]
     Active Substance: FUROSEMIDE
     Dosage: 125 MG, UNK
     Route: 048
     Dates: start: 201804
  16. EXOMUC [Concomitant]
     Active Substance: ACETYLCYSTEINE
     Dosage: 1 UNK, UNK
     Route: 048
     Dates: start: 20171223, end: 20180115

REACTIONS (1)
  - Ischaemic stroke [Not Recovered/Not Resolved]

NARRATIVE: CASE EVENT DATE: 20180412
